FAERS Safety Report 24036614 (Version 1)
Quarter: 2024Q3

REPORT INFORMATION
  Report Type: Spontaneous
  Country: US (occurrence: None)
  Receive Date: 20240701
  Receipt Date: 20240701
  Transmission Date: 20241016
  Serious: Yes (Life-Threatening, Hospitalization, Other)
  Sender: ASTRAZENECA
  Company Number: 2024A149768

PATIENT
  Age: 70 Year
  Sex: Male
  Weight: 115.2 kg

DRUGS (14)
  1. PRILOSEC [Suspect]
     Active Substance: OMEPRAZOLE MAGNESIUM
     Route: 048
     Dates: start: 20230710
  2. DOCETAXEL [Suspect]
     Active Substance: DOCETAXEL\DOCETAXEL ANHYDROUS
     Indication: Prostate cancer
     Dosage: EVERY 3 WEEKS75.0MG/M2 UNKNOWN
     Route: 042
     Dates: start: 20230914, end: 20230914
  3. VUDALIMAB [Suspect]
     Active Substance: VUDALIMAB
     Indication: Prostate cancer
     Dosage: EVERY 2 WEEKS
     Route: 042
     Dates: start: 20230914, end: 20230914
  4. DENOSUMAB [Concomitant]
     Active Substance: DENOSUMAB
     Dates: start: 20230710
  5. LOTREL [Concomitant]
     Active Substance: AMLODIPINE BESYLATE\BENAZEPRIL HYDROCHLORIDE
  6. ZYLOPRIM [Concomitant]
     Active Substance: ALLOPURINOL
     Dates: start: 20230710
  7. NORCO [Concomitant]
     Active Substance: ACETAMINOPHEN\HYDROCODONE BITARTRATE
     Dates: start: 20230710
  8. TYLENOL [Concomitant]
     Active Substance: ACETAMINOPHEN
     Dates: start: 20230914
  9. LIPITOR [Concomitant]
     Active Substance: ATORVASTATIN CALCIUM
     Dates: start: 20230710
  10. VITAMIN D3 [Concomitant]
     Active Substance: CHOLECALCIFEROL
  11. APIXABAN [Concomitant]
     Active Substance: APIXABAN
     Dates: start: 20231027
  12. IMODIUM [Concomitant]
     Active Substance: LOPERAMIDE HYDROCHLORIDE
     Dates: start: 20230914
  13. SODIUM CHLORIDE [Concomitant]
     Active Substance: SODIUM CHLORIDE
  14. NASTURTIUM OFFICINALE/SODIUM SULFATE/MYOSOTIS ARVENSIS/GERANIUM ROBERT [Concomitant]
     Dates: start: 20231117

REACTIONS (5)
  - Hepatic failure [Unknown]
  - Embolism [Recovered/Resolved]
  - Diarrhoea [Unknown]
  - Fatigue [Unknown]
  - Back pain [Unknown]

NARRATIVE: CASE EVENT DATE: 20231028
